FAERS Safety Report 6923802-6 (Version None)
Quarter: 2010Q3

REPORT INFORMATION
  Report Type: 
  Country: None (occurrence: None)
  Receive Date: 20100813
  Receipt Date: 20100803
  Transmission Date: 20110219
  Serious: Yes (Hospitalization)
  Sender: FDA-Public Use
  Company Number: GXKR2010GB08084

PATIENT
  Age: 41 Year
  Sex: Female

DRUGS (5)
  1. VALPROATE SODIUM (NGX) [Suspect]
     Route: 065
  2. CLONAZEPAM [Concomitant]
     Indication: INTENTIONAL OVERDOSE
     Route: 065
  3. OXAZEPAM [Concomitant]
     Route: 065
  4. PROPRANOLOL [Concomitant]
     Indication: INTENTIONAL OVERDOSE
     Route: 065
  5. FLUPENTIXOL DIHYDROCHLORIDE [Concomitant]
     Route: 065

REACTIONS (8)
  - AGITATION [None]
  - BRADYCARDIA [None]
  - CONSCIOUSNESS FLUCTUATING [None]
  - DISORIENTATION [None]
  - ENDOTRACHEAL INTUBATION [None]
  - HYPERAMMONAEMIC ENCEPHALOPATHY [None]
  - INTENTIONAL OVERDOSE [None]
  - MECHANICAL VENTILATION [None]
